FAERS Safety Report 7973822-8 (Version None)
Quarter: 2011Q4

REPORT INFORMATION
  Report Type: 
  Country: None (occurrence: None)
  Receive Date: 20111213
  Receipt Date: 20111130
  Transmission Date: 20120403
  Serious: Yes (Other)
  Sender: FDA-Public Use
  Company Number: CA-ELI_LILLY_AND_COMPANY-CA201111008994

PATIENT
  Sex: Male

DRUGS (8)
  1. ZYPREXA [Suspect]
     Dosage: 25 MG, EACH EVENING
  2. ZYPREXA [Suspect]
     Dosage: 7.5 MG, UNKNOWN
  3. ARTANE [Concomitant]
  4. VALPROIC ACID [Concomitant]
  5. CARBAMAZEPINE [Concomitant]
  6. ZYPREXA [Suspect]
     Indication: BIPOLAR DISORDER
     Dosage: 10 MG, UNKNOWN
  7. GLYBURIDE [Concomitant]
  8. ZYPREXA [Suspect]
     Dosage: 5 MG, UNKNOWN

REACTIONS (11)
  - DIABETIC MICROANGIOPATHY [None]
  - CATARACT [None]
  - WEIGHT INCREASED [None]
  - DYSLIPIDAEMIA [None]
  - DEMENTIA [None]
  - DIABETES MELLITUS [None]
  - OVERDOSE [None]
  - CORONARY ARTERY DISEASE [None]
  - HYPERTENSION [None]
  - LACUNAR INFARCTION [None]
  - CEREBRAL ATROPHY [None]
